FAERS Safety Report 15376286 (Version 1)
Quarter: 2018Q3

REPORT INFORMATION
  Report Type: Spontaneous
  Country: US (occurrence: US)
  Receive Date: 20180912
  Receipt Date: 20180912
  Transmission Date: 20181010
  Serious: Yes (Hospitalization)
  Sender: FDA-Public Use
  Company Number: US-OTSUKA-2018_030515

PATIENT
  Sex: Female

DRUGS (5)
  1. REXULTI [Suspect]
     Active Substance: BREXPIPRAZOLE
     Dosage: 2 MG, UNK
     Route: 065
  2. ABILIFY [Suspect]
     Active Substance: ARIPIPRAZOLE
     Indication: BIPOLAR DISORDER
     Dosage: UNK
     Route: 065
  3. REXULTI [Suspect]
     Active Substance: BREXPIPRAZOLE
     Indication: BIPOLAR DISORDER
     Dosage: 0.5 MG, UNK
     Route: 065
  4. REXULTI [Suspect]
     Active Substance: BREXPIPRAZOLE
     Dosage: 1 MG, UNK
     Route: 065
  5. REXULTI [Suspect]
     Active Substance: BREXPIPRAZOLE
     Dosage: 1.5 MG, UNK
     Route: 065

REACTIONS (14)
  - Catheter placement [Not Recovered/Not Resolved]
  - Adverse event [Not Recovered/Not Resolved]
  - Living in residential institution [Unknown]
  - Hospitalisation [Unknown]
  - Rib fracture [Unknown]
  - Withdrawal syndrome [Unknown]
  - Hallucination [Unknown]
  - Dysphagia [Unknown]
  - Wrong drug administered [Unknown]
  - Rehabilitation therapy [Unknown]
  - Fall [Unknown]
  - Urinary tract infection [Unknown]
  - Gait inability [Unknown]
  - Drug effective for unapproved indication [Unknown]

NARRATIVE: CASE EVENT DATE: 2017
